FAERS Safety Report 5709035-X (Version None)
Quarter: 2008Q2

REPORT INFORMATION
  Report Type: 
  Country: None (occurrence: None)
  Receive Date: 20080418
  Receipt Date: 20080414
  Transmission Date: 20081010
  Serious: Yes (Other)
  Sender: FDA-Public Use
  Company Number: PHBS2008FR04077

PATIENT
  Age: 80 Year
  Sex: Female

DRUGS (6)
  1. PRAVASTATIN [Suspect]
     Route: 065
  2. CORTICOSTEROIDS [Concomitant]
  3. HYDROXYCHLOROQUINE [Concomitant]
  4. AZATHIOPRINE [Concomitant]
  5. METHOTREXATE [Concomitant]
  6. FLUVASTATIN SODIUM [Suspect]
     Route: 065

REACTIONS (4)
  - BLOOD CREATINE PHOSPHOKINASE INCREASED [None]
  - MUSCULAR WEAKNESS [None]
  - MYALGIA [None]
  - POLYMYOSITIS [None]
